FAERS Safety Report 9102977 (Version 1)
Quarter: 2013Q1

REPORT INFORMATION
  Report Type: Spontaneous
  Country: BR (occurrence: BR)
  Receive Date: 20130219
  Receipt Date: 20130219
  Transmission Date: 20140127
  Serious: Yes (Hospitalization)
  Sender: FDA-Public Use
  Company Number: BR-ELI_LILLY_AND_COMPANY-BR201302002130

PATIENT
  Sex: Male
  Weight: 80 kg

DRUGS (2)
  1. HUMULIN NPH [Suspect]
     Indication: DIABETES MELLITUS
     Dosage: UNK UNK, UNKNOWN
     Route: 058
  2. HUMULIN REGULAR [Suspect]
     Indication: DIABETES MELLITUS
     Dosage: UNK UNK, UNKNOWN
     Route: 058

REACTIONS (2)
  - Peritonitis bacterial [Unknown]
  - Blood glucose fluctuation [Not Recovered/Not Resolved]
